FAERS Safety Report 8815790 (Version 1)
Quarter: 2012Q4

REPORT INFORMATION
  Report Type: 
  Country: FR (occurrence: FR)
  Receive Date: 20120928
  Receipt Date: 20120928
  Transmission Date: 20130627
  Serious: Yes (Other)
  Sender: FDA-Public Use
  Company Number: FR-009507513-1209FRA011198

PATIENT
  Sex: Female

DRUGS (4)
  1. SINEMET [Suspect]
     Indication: PARKINSON^S DISEASE
     Dosage: 250 mg, qd
     Route: 048
     Dates: start: 200706, end: 201206
  2. PIRIBEDIL [Suspect]
     Indication: PARKINSON^S DISEASE
     Dosage: 50 mg, tid
     Route: 048
     Dates: start: 200706
  3. CERIS [Concomitant]
     Dosage: UNK
     Dates: start: 2002
  4. STABLON [Concomitant]
     Dosage: UNK
     Dates: start: 2011

REACTIONS (4)
  - Impulse-control disorder [Not Recovered/Not Resolved]
  - Compulsive shopping [Not Recovered/Not Resolved]
  - Eating disorder [Not Recovered/Not Resolved]
  - Stereotypy [Not Recovered/Not Resolved]
